FAERS Safety Report 5597575-6 (Version None)
Quarter: 2008Q1

REPORT INFORMATION
  Report Type: 
  Country: None (occurrence: None)
  Receive Date: 20080121
  Receipt Date: 20080115
  Transmission Date: 20080703
  Serious: Yes (Hospitalization)
  Sender: FDA-Public Use
  Company Number: A0704172A

PATIENT
  Age: 23 Year
  Sex: Male

DRUGS (2)
  1. LAMICTAL [Suspect]
     Indication: CONVULSION
     Dosage: 150MG TWICE PER DAY
     Route: 048
  2. ATIVAN [Concomitant]

REACTIONS (7)
  - BLOOD PRESSURE FLUCTUATION [None]
  - BODY TEMPERATURE FLUCTUATION [None]
  - BRADYCARDIA [None]
  - CHILLS [None]
  - CONVULSION [None]
  - HYPERSOMNIA [None]
  - TACHYCARDIA [None]
